FAERS Safety Report 4509139-3 (Version None)
Quarter: 2004Q4

REPORT INFORMATION
  Report Type: 
  Country: None (occurrence: None)
  Receive Date: 20041025
  Receipt Date: 20040112
  Transmission Date: 20050328
  Serious: Yes (Other)
  Sender: FDA-Public Use
  Company Number: NSADSS2003016130

PATIENT
  Age: 67 Year
  Sex: Female

DRUGS (16)
  1. REMICADE [Suspect]
     Indication: RHEUMATOID ARTHRITIS
     Dosage: SEE IMAGE
     Route: 041
     Dates: start: 20020520
  2. REMICADE [Suspect]
     Indication: RHEUMATOID ARTHRITIS
     Dosage: SEE IMAGE
     Route: 041
     Dates: start: 20020603
  3. REMICADE [Suspect]
     Indication: RHEUMATOID ARTHRITIS
     Dosage: SEE IMAGE
     Route: 041
     Dates: start: 20020701
  4. REMICADE [Suspect]
     Indication: RHEUMATOID ARTHRITIS
     Dosage: SEE IMAGE
     Route: 041
     Dates: start: 20020826
  5. ARAVA [Concomitant]
  6. METHOTREXATE [Concomitant]
  7. CELEBREX [Concomitant]
  8. PREDNISONE [Concomitant]
  9. NORVASC [Concomitant]
  10. PREMPRO 14/14 [Concomitant]
  11. VITAMIN E [Concomitant]
  12. VITAMIN C (ASCORBIC ACID) [Concomitant]
  13. TUMS (CALCIUM CARBONATE) [Concomitant]
  14. AFRIN (AFRIN/OLD FORM) [Concomitant]
  15. TYLENOL [Concomitant]
  16. CHLOR-TRIMETON [Concomitant]

REACTIONS (3)
  - BREAST CANCER [None]
  - OSTEOMYELITIS [None]
  - WOUND INFECTION STAPHYLOCOCCAL [None]
